FAERS Safety Report 10491880 (Version 1)
Quarter: 2014Q4

REPORT INFORMATION
  Report Type: Spontaneous
  Country: US (occurrence: US)
  Receive Date: 20141002
  Receipt Date: 20141002
  Transmission Date: 20150528
  Serious: No
  Sender: FDA-Public Use
  Company Number: US-GLAXOSMITHKLINE-A1061517A

PATIENT
  Sex: Female

DRUGS (6)
  1. ADVAIR HFA [Suspect]
     Active Substance: FLUTICASONE PROPIONATE\SALMETEROL XINAFOATE
     Indication: PRODUCT USED FOR UNKNOWN INDICATION
     Route: 055
  2. UNKNOWN [Concomitant]
     Active Substance: UNSPECIFIED INGREDIENT
  3. PREDNISONE. [Concomitant]
     Active Substance: PREDNISONE
  4. INHALER [Concomitant]
     Active Substance: UNSPECIFIED INGREDIENT
  5. AMBIEN [Concomitant]
     Active Substance: ZOLPIDEM TARTRATE
  6. NEBULIZER [Concomitant]
     Active Substance: UNSPECIFIED INGREDIENT

REACTIONS (1)
  - Chronic obstructive pulmonary disease [Not Recovered/Not Resolved]

NARRATIVE: CASE EVENT DATE: 2013
